FAERS Safety Report 4541169-8 (Version None)
Quarter: 2004Q4

REPORT INFORMATION
  Report Type: 
  Country: None (occurrence: None)
  Receive Date: 20041227
  Receipt Date: 20041221
  Transmission Date: 20050328
  Serious: Yes (Death, Hospitalization)
  Sender: FDA-Public Use
  Company Number: SEWYE190610NOV04

PATIENT
  Age: 42 Year
  Sex: Female

DRUGS (3)
  1. EFFEXOR [Suspect]
     Indication: DEPRESSION
     Dosage: 150 MG 2X PER 1 DAY
     Route: 048
     Dates: start: 19980101
  2. ASPIRIN [Concomitant]
  3. ATENOLOL [Concomitant]

REACTIONS (4)
  - HEPATIC STEATOSIS [None]
  - HEPATOMEGALY [None]
  - MYOCARDITIS [None]
  - VENTRICULAR TACHYCARDIA [None]
